FAERS Safety Report 4494263-4 (Version None)
Quarter: 2004Q4

REPORT INFORMATION
  Report Type: 
  Country: None (occurrence: None)
  Receive Date: 20041104
  Receipt Date: 20041104
  Transmission Date: 20050328
  Serious: Yes (Life-Threatening)
  Sender: FDA-Public Use
  Company Number: None

PATIENT
  Sex: Male
  Weight: 72 kg

DRUGS (2)
  1. PHENYTOIN [Suspect]
     Indication: CONVULSION PROPHYLAXIS
     Dosage: 900 MG ONCE IV, 500 MG ONCE IV
     Route: 042
     Dates: start: 20041005, end: 20041006
  2. COCAINE [Suspect]

REACTIONS (9)
  - ATRIOVENTRICULAR BLOCK COMPLETE [None]
  - CONVULSION [None]
  - DRUG ABUSER [None]
  - DRUG LEVEL BELOW THERAPEUTIC [None]
  - GENERAL PHYSICAL HEALTH DETERIORATION [None]
  - LACERATION [None]
  - NODAL RHYTHM [None]
  - RENAL FAILURE ACUTE [None]
  - TONGUE INJURY [None]
